FAERS Safety Report 5832440-8 (Version None)
Quarter: 2008Q3

REPORT INFORMATION
  Report Type: 
  Country: None (occurrence: None)
  Receive Date: 20080804
  Receipt Date: 20080728
  Transmission Date: 20090109
  Serious: Yes (Hospitalization)
  Sender: FDA-Public Use
  Company Number: FR-SANOFI-SYNTHELABO-F01200801100

PATIENT
  Sex: Female
  Weight: 50 kg

DRUGS (4)
  1. GEMCITABINE HCL [Suspect]
     Dosage: DAY 2, Q2W
     Route: 042
     Dates: start: 20080605, end: 20080605
  2. RITUXIMAB [Suspect]
     Dosage: DAY 1, Q2W
     Route: 042
     Dates: start: 20080604, end: 20080604
  3. ENZASTAURIN [Suspect]
     Route: 048
     Dates: start: 20080417, end: 20080613
  4. OXALIPLATIN [Suspect]
     Indication: DIFFUSE LARGE B-CELL LYMPHOMA
     Dosage: DAY 2, Q2W UNK
     Route: 042
     Dates: start: 20080605, end: 20080605

REACTIONS (1)
  - RENAL HAEMORRHAGE [None]
